FAERS Safety Report 17019788 (Version 1)
Quarter: 2019Q4

REPORT INFORMATION
  Report Type: Spontaneous
  Country: US (occurrence: US)
  Receive Date: 20191112
  Receipt Date: 20191112
  Transmission Date: 20200122
  Serious: No
  Sender: FDA-Public Use
  Company Number: US-BTG-201900156

PATIENT
  Age: 19 Year
  Sex: Male

DRUGS (2)
  1. CROFAB [Suspect]
     Active Substance: CROTALIDAE POLYVALENT IMMUNE FAB (OVINE)
     Indication: SNAKE BITE
     Dosage: 2 VIALS AT 04:55
     Route: 065
     Dates: start: 20190819
  2. CROFAB [Suspect]
     Active Substance: CROTALIDAE POLYVALENT IMMUNE FAB (OVINE)
     Indication: SNAKE BITE
     Dosage: 2 VIALS AT 23:21
     Route: 065
     Dates: start: 20190818

REACTIONS (7)
  - Peripheral swelling [Recovering/Resolving]
  - White blood cell count abnormal [Unknown]
  - Nausea [Unknown]
  - Product availability issue [Unknown]
  - Product dispensing error [Unknown]
  - Intercepted medication error [Unknown]
  - Inappropriate schedule of product administration [Unknown]

NARRATIVE: CASE EVENT DATE: 20190818
